FAERS Safety Report 5343874-2 (Version None)
Quarter: 2007Q2

REPORT INFORMATION
  Report Type: 
  Country: None (occurrence: None)
  Receive Date: 20070531
  Receipt Date: 20070522
  Transmission Date: 20071010
  Serious: Yes (Other)
  Sender: FDA-Public Use
  Company Number: 2007-GWUS-0242

PATIENT
  Age: 56 Year
  Sex: Male
  Weight: 63.9572 kg

DRUGS (4)
  1. ALDARA [Suspect]
  2. TRICOR [Concomitant]
  3. CRESTOR [Concomitant]
  4. ASPIRIN [Concomitant]

REACTIONS (2)
  - HEAD DISCOMFORT [None]
  - HYPOTENSION [None]
